FAERS Safety Report 23184433 (Version 3)
Quarter: 2024Q1

REPORT INFORMATION
  Report Type: Report from Study
  Country: US (occurrence: US)
  Receive Date: 20231115
  Receipt Date: 20240113
  Transmission Date: 20240410
  Serious: Yes (Other)
  Sender: FDA-Public Use
  Company Number: US-ABBVIE-5491405

PATIENT
  Age: 64 Year
  Sex: Male

DRUGS (1)
  1. SKYRIZI [Suspect]
     Active Substance: RISANKIZUMAB-RZAA
     Indication: Crohn^s disease
     Dosage: 360MG/2.4ML
     Route: 058

REACTIONS (8)
  - Nephrolithiasis [Unknown]
  - Arthralgia [Unknown]
  - Adverse reaction [Unknown]
  - Muscle spasms [Unknown]
  - Pain [Unknown]
  - Myalgia [Recovering/Resolving]
  - Grip strength decreased [Unknown]
  - Arthralgia [Recovering/Resolving]

NARRATIVE: CASE EVENT DATE: 20230910
